FAERS Safety Report 6223299-8 (Version None)
Quarter: 2009Q2

REPORT INFORMATION
  Report Type: 
  Country: None (occurrence: None)
  Receive Date: 20090611
  Receipt Date: 20090602
  Transmission Date: 20091009
  Serious: Yes (Hospitalization)
  Sender: FDA-Public Use
  Company Number: PL-MEDIMMUNE-MEDI-0008444

PATIENT
  Sex: Female

DRUGS (4)
  1. SYNAGIS [Suspect]
     Indication: BRONCHOPULMONARY DYSPLASIA
     Route: 030
     Dates: start: 20090129, end: 20090129
  2. SYNAGIS [Suspect]
     Route: 030
     Dates: start: 20090226
  3. SYNAGIS [Suspect]
     Route: 030
     Dates: start: 20090331
  4. SYNAGIS [Suspect]
     Route: 030
     Dates: start: 20090424

REACTIONS (3)
  - LOBAR PNEUMONIA [None]
  - NERVOUSNESS [None]
  - PNEUMONIA [None]
